FAERS Safety Report 15735023 (Version 2)
Quarter: 2019Q1

REPORT INFORMATION
  Report Type: Spontaneous
  Country: US (occurrence: US)
  Receive Date: 20181218
  Receipt Date: 20190125
  Transmission Date: 20190417
  Serious: Yes (Hospitalization)
  Sender: FDA-Public Use
  Company Number: US-THERAPEUTICSMD-2018TMD00412

PATIENT
  Age: 57 Year
  Sex: Female
  Weight: 56.69 kg

DRUGS (4)
  1. IMVEXXY [Suspect]
     Active Substance: ESTRADIOL
     Indication: VULVOVAGINAL DRYNESS
     Dosage: UNK
     Dates: start: 20190110
  2. IBUPROFEN. [Concomitant]
     Active Substance: IBUPROFEN
  3. IMVEXXY [Suspect]
     Active Substance: ESTRADIOL
     Indication: DYSPAREUNIA
     Dosage: 10 ?G, ONCE IN THE MORNING
     Route: 067
     Dates: start: 20180926, end: 20180926
  4. CHRONIC SINUSITIS MEDICATION (UNSPECIFIED) [Concomitant]

REACTIONS (8)
  - Feeling abnormal [Unknown]
  - Diverticulitis [Not Recovered/Not Resolved]
  - Lung disorder [Not Recovered/Not Resolved]
  - Vaginal discharge [Unknown]
  - Diverticular perforation [Not Recovered/Not Resolved]
  - Genital infection bacterial [Unknown]
  - Hypergammaglobulinaemia benign monoclonal [Not Recovered/Not Resolved]
  - Vaginal exfoliation [Unknown]

NARRATIVE: CASE EVENT DATE: 2018
